FAERS Safety Report 9957440 (Version 1)
Quarter: 2014Q1

REPORT INFORMATION
  Report Type: Report from Study
  Country: US (occurrence: US)
  Receive Date: 20140304
  Receipt Date: 20140304
  Transmission Date: 20141002
  Serious: No
  Sender: FDA-Public Use
  Company Number: US-ABBVIE-13P-163-1098145-00

PATIENT
  Age: 38 Year
  Sex: Female

DRUGS (4)
  1. HUMIRA [Suspect]
     Indication: PSORIATIC ARTHROPATHY
     Route: 058
     Dates: start: 20130529
  2. PERCOCET [Concomitant]
     Indication: ENDOMETRIOSIS
  3. ZOLOFT [Concomitant]
     Indication: PREMENSTRUAL DYSPHORIC DISORDER
     Dosage: 100MG DAILY
  4. AMBIEN [Concomitant]
     Indication: INSOMNIA

REACTIONS (2)
  - Injection site pain [Recovered/Resolved]
  - Injection site haemorrhage [Recovered/Resolved]
